FAERS Safety Report 20415682 (Version 1)
Quarter: 2022Q1

REPORT INFORMATION
  Report Type: Spontaneous
  Country: CN (occurrence: CN)
  Receive Date: 20220202
  Receipt Date: 20220202
  Transmission Date: 20220423
  Serious: Yes (Hospitalization)
  Sender: FDA-Public Use
  Company Number: CN-BAXTER-2022BAX001887

PATIENT
  Age: 75 Year
  Sex: Male
  Weight: 67.5 kg

DRUGS (14)
  1. CYCLOPHOSPHAMIDE [Suspect]
     Active Substance: CYCLOPHOSPHAMIDE
     Indication: Neoplasm malignant
     Dosage: CYCLOPHOSPHAMIDE FOR INJECTION 0.5 G + 0.9% SODIUM CHLORIDE INJECTION 100 ML
     Route: 041
     Dates: start: 20220107, end: 20220107
  2. CYCLOPHOSPHAMIDE [Suspect]
     Active Substance: CYCLOPHOSPHAMIDE
     Indication: Chemotherapy
     Dosage: CYCLOPHOSPHAMIDE FOR INJECTION 0.5 G + 0.9% SODIUM CHLORIDE INJECTION 100 ML
     Route: 041
     Dates: start: 20220114, end: 20220114
  3. CYCLOPHOSPHAMIDE [Suspect]
     Active Substance: CYCLOPHOSPHAMIDE
     Dosage: CYCLOPHOSPHAMIDE FOR INJECTION 0.5 G + 0.9% SODIUM CHLORIDE INJECTION 100 ML
     Route: 041
     Dates: start: 20220121, end: 20220121
  4. SODIUM CHLORIDE [Suspect]
     Active Substance: SODIUM CHLORIDE
     Indication: Medication dilution
     Dosage: CYCLOPHOSPHAMIDE FOR INJECTION 0.5 G + 0.9% SODIUM CHLORIDE INJECTION 100 ML
     Route: 041
     Dates: start: 20220107, end: 20220107
  5. SODIUM CHLORIDE [Suspect]
     Active Substance: SODIUM CHLORIDE
     Dosage: CYCLOPHOSPHAMIDE FOR INJECTION 0.5 G + 0.9% SODIUM CHLORIDE INJECTION 100 ML
     Route: 041
     Dates: start: 20220114, end: 20220114
  6. SODIUM CHLORIDE [Suspect]
     Active Substance: SODIUM CHLORIDE
     Dosage: CYCLOPHOSPHAMIDE FOR INJECTION 0.5 G + 0.9% SODIUM CHLORIDE INJECTION 100 ML
     Route: 041
     Dates: start: 20220121, end: 20220121
  7. SODIUM CHLORIDE [Suspect]
     Active Substance: SODIUM CHLORIDE
     Dosage: BORTEZOMIB FOR INJECTION 2.2 MG + 0.9% SODIUM CHLORIDE INJECTION 1 ML
     Route: 058
     Dates: start: 20220110, end: 20220110
  8. SODIUM CHLORIDE [Suspect]
     Active Substance: SODIUM CHLORIDE
     Dosage: BORTEZOMIB FOR INJECTION 2.2 MG + 0.9% SODIUM CHLORIDE INJECTION 1 ML
     Route: 058
     Dates: start: 20220114, end: 20220114
  9. SODIUM CHLORIDE [Suspect]
     Active Substance: SODIUM CHLORIDE
     Dosage: BORTEZOMIB FOR INJECTION 2.2 MG + 0.9% SODIUM CHLORIDE INJECTION 1 ML
     Route: 058
     Dates: start: 20220117, end: 20220117
  10. SODIUM CHLORIDE [Suspect]
     Active Substance: SODIUM CHLORIDE
     Dosage: BORTEZOMIB FOR INJECTION 2.2 MG + 0.9% SODIUM CHLORIDE INJECTION 1 ML
     Route: 058
     Dates: start: 20220107, end: 20220107
  11. BORTEZOMIB [Suspect]
     Active Substance: BORTEZOMIB
     Indication: Chemotherapy
     Dosage: BORTEZOMIB FOR INJECTION 2.2 MG + 0.9% SODIUM CHLORIDE INJECTION 1 ML
     Route: 058
     Dates: start: 20220107, end: 20220107
  12. BORTEZOMIB [Suspect]
     Active Substance: BORTEZOMIB
     Indication: Neoplasm malignant
     Dosage: BORTEZOMIB FOR INJECTION 2.2 MG + 0.9% SODIUM CHLORIDE INJECTION 1 ML
     Route: 058
     Dates: start: 20220110, end: 20220110
  13. BORTEZOMIB [Suspect]
     Active Substance: BORTEZOMIB
     Dosage: BORTEZOMIB FOR INJECTION 2.2 MG + 0.9% SODIUM CHLORIDE INJECTION 1 ML
     Route: 058
     Dates: start: 20220114, end: 20220114
  14. BORTEZOMIB [Suspect]
     Active Substance: BORTEZOMIB
     Dosage: BORTEZOMIB FOR INJECTION 2.2 MG + 0.9% SODIUM CHLORIDE INJECTION 1 ML
     Route: 058
     Dates: start: 20220117, end: 20220117

REACTIONS (1)
  - Platelet count decreased [Unknown]

NARRATIVE: CASE EVENT DATE: 20220121
